FAERS Safety Report 8296860-7 (Version None)
Quarter: 2012Q2

REPORT INFORMATION
  Report Type: 
  Country: None (occurrence: None)
  Receive Date: 20120419
  Receipt Date: 20120410
  Transmission Date: 20120825
  Serious: Yes (Hospitalization, Other)
  Sender: FDA-Public Use
  Company Number: DE-BIOGENIDEC-2012BI000282

PATIENT
  Age: 39 Year
  Sex: Male

DRUGS (8)
  1. TYSABRI [Suspect]
     Route: 042
     Dates: start: 20120206
  2. TYSABRI [Suspect]
     Indication: MULTIPLE SCLEROSIS
     Route: 042
     Dates: start: 20080425, end: 20111129
  3. CARBAMAZEPINE [Concomitant]
     Indication: EPILEPSY
  4. TIZANIDIN [Concomitant]
     Indication: MUSCLE SPASTICITY
  5. LEVETIRACETAM [Concomitant]
     Dates: end: 20120106
  6. LEVETIRACETAM [Concomitant]
     Dates: start: 20111228
  7. LEVETIRACETAM [Concomitant]
     Dates: end: 20120110
  8. LEVETIRACETAM [Concomitant]
     Dates: end: 20120108

REACTIONS (2)
  - PARTIAL SEIZURES [None]
  - PROGRESSIVE MULTIFOCAL LEUKOENCEPHALOPATHY [None]
